FAERS Safety Report 8991773 (Version 1)
Quarter: 2012Q4

REPORT INFORMATION
  Report Type: 
  Country: ZA (occurrence: ZA)
  Receive Date: 20121231
  Receipt Date: 20121231
  Transmission Date: 20130627
  Serious: Yes (Other)
  Sender: FDA-Public Use
  Company Number: ZA-JNJFOC-20121211540

PATIENT
  Sex: Female
  Weight: 55 kg

DRUGS (2)
  1. REVELLEX [Suspect]
     Indication: COLITIS ULCERATIVE
     Route: 042
     Dates: start: 201203
  2. NORDETTE [Concomitant]
     Indication: CONTRACEPTION
     Route: 048

REACTIONS (2)
  - Gingival bleeding [Not Recovered/Not Resolved]
  - Sensory loss [Not Recovered/Not Resolved]
